FAERS Safety Report 6983154-2 (Version None)
Quarter: 2010Q3

REPORT INFORMATION
  Report Type: 
  Country: None (occurrence: None)
  Receive Date: 20100914
  Receipt Date: 20100628
  Transmission Date: 20110219
  Serious: Yes (Other)
  Sender: FDA-Public Use
  Company Number: US-PFIZER INC-2010081153

PATIENT
  Sex: Male
  Weight: 106 kg

DRUGS (7)
  1. LYRICA [Suspect]
     Indication: POST HERPETIC NEURALGIA
     Dosage: 25 MG, 3X/DAY
     Route: 048
     Dates: start: 20100501, end: 20100501
  2. LYRICA [Suspect]
     Dosage: 50 MG, 3X/DAY
     Dates: start: 20100501, end: 20100501
  3. LYRICA [Suspect]
     Dosage: 75 MG, 3X/DAY
     Dates: start: 20100501, end: 20100501
  4. LYRICA [Suspect]
     Dosage: 150 MG, 3X/DAY
     Route: 048
     Dates: start: 20100501, end: 20100501
  5. TOPROL-XL [Concomitant]
     Indication: HYPERTENSION
     Dosage: UNK
  6. ZOCOR [Concomitant]
     Indication: BLOOD CHOLESTEROL INCREASED
     Dosage: UNK
  7. COUMADIN [Concomitant]
     Indication: HEART VALVE REPLACEMENT
     Dosage: UNK

REACTIONS (5)
  - CONFUSIONAL STATE [None]
  - DIPLOPIA [None]
  - DYSARTHRIA [None]
  - OEDEMA PERIPHERAL [None]
  - SUICIDAL IDEATION [None]
